FAERS Safety Report 6874515-0 (Version None)
Quarter: 2010Q3

REPORT INFORMATION
  Report Type: 
  Country: None (occurrence: None)
  Receive Date: 20100723
  Receipt Date: 20100723
  Transmission Date: 20110219
  Serious: Yes (Hospitalization)
  Sender: FDA-Public Use
  Company Number: None

PATIENT
  Sex: Female
  Weight: 73.8 kg

DRUGS (2)
  1. CARBOPLATIN [Suspect]
     Dosage: 615 MG
     Dates: end: 20100629
  2. ETOPOSIDE [Suspect]
     Dosage: 540 MG
     Dates: end: 20100701

REACTIONS (9)
  - ANAEMIA [None]
  - CHRONIC OBSTRUCTIVE PULMONARY DISEASE [None]
  - CONDITION AGGRAVATED [None]
  - DYSPNOEA [None]
  - HYPOCALCAEMIA [None]
  - HYPOKALAEMIA [None]
  - HYPOMAGNESAEMIA [None]
  - NEUTROPHIL COUNT ABNORMAL [None]
  - PLATELET DISORDER [None]
